FAERS Safety Report 8888990 (Version 1)
Quarter: 2012Q4

REPORT INFORMATION
  Report Type: Report from Study
  Country: US (occurrence: US)
  Receive Date: 20121106
  Receipt Date: 20121106
  Transmission Date: 20130627
  Serious: No
  Sender: FDA-Public Use
  Company Number: US-VERTEX PHARMACEUTICAL INC.-2012-024062

PATIENT
  Sex: Female

DRUGS (3)
  1. TELAPREVIR [Suspect]
     Indication: HEPATITIS C
     Dosage: UNK
  2. PEGASYS [Suspect]
     Indication: HEPATITIS C
     Dosage: UNK
     Dates: start: 20120321, end: 20121015
  3. RIBAVIRIN [Suspect]
     Indication: HEPATITIS C
     Dosage: UNK
     Dates: start: 20120321

REACTIONS (1)
  - Nausea [Not Recovered/Not Resolved]
